FAERS Safety Report 12083691 (Version 4)
Quarter: 2016Q2

REPORT INFORMATION
  Report Type: Report from Study
  Country: ES (occurrence: ES)
  Receive Date: 20160217
  Receipt Date: 20160628
  Transmission Date: 20160815
  Serious: Yes (Death, Hospitalization, Other)
  Sender: FDA-Public Use
  Company Number: ES-ASTELLAS-2015US015279

PATIENT
  Age: 56 Year
  Sex: Female
  Weight: 58 kg

DRUGS (7)
  1. BLINDED ASP0113 [Suspect]
     Active Substance: INVESTIGATIONAL PRODUCT
     Route: 030
     Dates: start: 20141106, end: 20141106
  2. BLINDED ASP0113 [Suspect]
     Active Substance: INVESTIGATIONAL PRODUCT
     Route: 030
     Dates: start: 20150416, end: 20150416
  3. TACROLIMUS. [Suspect]
     Active Substance: TACROLIMUS
     Indication: PRODUCT USED FOR UNKNOWN INDICATION
     Dosage: UNK, UNKNOWN FREQ.
     Route: 065
  4. BLINDED ASP0113 [Suspect]
     Active Substance: INVESTIGATIONAL PRODUCT
     Indication: IMMUNISATION
     Route: 030
     Dates: start: 20141009, end: 20141009
  5. BLINDED ASP0113 [Suspect]
     Active Substance: INVESTIGATIONAL PRODUCT
     Route: 030
     Dates: start: 20141218, end: 20141218
  6. BLINDED ASP0113 [Suspect]
     Active Substance: INVESTIGATIONAL PRODUCT
     Route: 030
     Dates: start: 20150115, end: 20150115
  7. ACICLOVIR [Suspect]
     Active Substance: ACYCLOVIR
     Indication: HERPES VIRUS INFECTION
     Route: 048
     Dates: start: 20150513, end: 20150516

REACTIONS (12)
  - Agranulocytosis [Fatal]
  - Acute graft versus host disease in intestine [Recovered/Resolved]
  - Acute graft versus host disease in skin [Recovered/Resolved]
  - Chronic graft versus host disease in intestine [Fatal]
  - Transplant failure [Fatal]
  - Febrile neutropenia [Recovered/Resolved]
  - Acute graft versus host disease in intestine [Recovered/Resolved]
  - Acute graft versus host disease in skin [Recovered/Resolved]
  - Sepsis [Recovered/Resolved]
  - Acute graft versus host disease in skin [Recovered/Resolved]
  - Chronic graft versus host disease in liver [Fatal]
  - Acute graft versus host disease in intestine [Recovered/Resolved]

NARRATIVE: CASE EVENT DATE: 20141030
